FAERS Safety Report 15057061 (Version 1)
Quarter: 2018Q2

REPORT INFORMATION
  Report Type: Spontaneous
  Country: US (occurrence: US)
  Receive Date: 20180604
  Receipt Date: 20180604
  Transmission Date: 20180711
  Serious: Yes (Congenital Anomaly)
  Sender: FDA-Public Use
  Company Number: None

PATIENT
  Age: 71 Year
  Sex: Male

DRUGS (1)
  1. OXYBUTYNIN ER [Suspect]
     Active Substance: OXYBUTYNIN
     Route: 048
     Dates: start: 20180508, end: 20180529

REACTIONS (3)
  - Constipation [None]
  - Vision blurred [None]
  - Drug intolerance [None]

NARRATIVE: CASE EVENT DATE: 20180529
